FAERS Safety Report 23408058 (Version 1)
Quarter: 2024Q1

REPORT INFORMATION
  Report Type: Spontaneous
  Country: US (occurrence: None)
  Receive Date: 20240117
  Receipt Date: 20240117
  Transmission Date: 20240409
  Serious: Yes (Hospitalization, Disabling, Other)
  Sender: FDA-Public Use
  Company Number: US-Unichem Pharmaceuticals (USA) Inc-UCM202401-000031

PATIENT
  Age: 56 Year
  Sex: Female

DRUGS (14)
  1. DIVALPROEX SODIUM [Suspect]
     Active Substance: DIVALPROEX SODIUM
     Indication: Seizure prophylaxis
     Dates: start: 2022
  2. ARIPIPRAZOLE [Suspect]
     Active Substance: ARIPIPRAZOLE
     Indication: Product used for unknown indication
     Dates: start: 2022
  3. ARIPIPRAZOLE [Suspect]
     Active Substance: ARIPIPRAZOLE
     Dosage: MANUFACTURED CAMBER PHARMACEUTICALS
  4. ESCITALOPRAM [Suspect]
     Active Substance: ESCITALOPRAM OXALATE
     Indication: Post-traumatic stress disorder
     Dates: start: 2015, end: 2018
  5. ESCITALOPRAM [Suspect]
     Active Substance: ESCITALOPRAM OXALATE
     Dosage: MANUFACTURED BY AUROBINDO
     Dates: start: 2018
  6. PHENTERMINE HYDROCHLORIDE [Suspect]
     Active Substance: PHENTERMINE HYDROCHLORIDE
     Indication: Weight increased
     Dates: start: 2022
  7. GABAPENTIN [Suspect]
     Active Substance: GABAPENTIN
     Indication: Nerve injury
     Dates: start: 2015
  8. QUETIAPINE [Suspect]
     Active Substance: QUETIAPINE
     Indication: Sleep disorder
     Dosage: LOWER DOSE
     Dates: start: 2022, end: 2022
  9. FLUOXETINE [Suspect]
     Active Substance: FLUOXETINE HYDROCHLORIDE
     Indication: Sleep disorder
     Dosage: UNKNOWN
  10. ZIPRASIDONE HYDROCHLORIDE [Suspect]
     Active Substance: ZIPRASIDONE HYDROCHLORIDE
     Indication: Product used for unknown indication
  11. ZIPRASIDONE HYDROCHLORIDE [Suspect]
     Active Substance: ZIPRASIDONE HYDROCHLORIDE
  12. QUETIAPINE FUMARATE [Suspect]
     Active Substance: QUETIAPINE FUMARATE
     Indication: Sleep disorder
     Dosage: LOWER DOSE
     Dates: start: 2022, end: 2022
  13. CYCLOBENZAPRINE [Concomitant]
     Active Substance: CYCLOBENZAPRINE
     Indication: Product used for unknown indication
     Dosage: MANUFACTURED BY TRU PHARMA
     Dates: start: 2014
  14. CYCLOBENZAPRINE [Concomitant]
     Active Substance: CYCLOBENZAPRINE
     Dosage: MANUFACTURED BY AUROBINDO PHARMA

REACTIONS (26)
  - Hip arthroplasty [Unknown]
  - Schizoaffective disorder [Unknown]
  - Hallucination, auditory [Unknown]
  - Suicidal ideation [Unknown]
  - Suicide attempt [Unknown]
  - Prescribed overdose [Unknown]
  - Osteoarthritis [Unknown]
  - Cerebral disorder [Unknown]
  - Performance status decreased [Unknown]
  - Paranoia [Unknown]
  - Headache [Unknown]
  - Unevaluable event [Unknown]
  - Wrong technique in product usage process [Unknown]
  - Thirst [Unknown]
  - Fall [Unknown]
  - Mania [Unknown]
  - Swelling [Unknown]
  - Injury [Unknown]
  - Cognitive disorder [Unknown]
  - Mental disorder [Unknown]
  - Pain [Unknown]
  - Somnolence [Unknown]
  - Memory impairment [Unknown]
  - Fatigue [Unknown]
  - Thinking abnormal [Unknown]
  - Weight increased [Unknown]

NARRATIVE: CASE EVENT DATE: 20220601
